FAERS Safety Report 17550013 (Version 2)
Quarter: 2020Q2

REPORT INFORMATION
  Report Type: Report from Study
  Country: US (occurrence: US)
  Receive Date: 20200317
  Receipt Date: 20200406
  Transmission Date: 20200713
  Serious: Yes (Other)
  Sender: FDA-Public Use
  Company Number: US-JNJFOC-20200310025

PATIENT
  Age: 30 Year
  Sex: Female
  Weight: 79.45 kg

DRUGS (8)
  1. ASHLYNA [Concomitant]
     Active Substance: ETHINYL ESTRADIOL\LEVONORGESTREL
     Indication: CONTRACEPTION
     Dosage: DOSE: 0.15MCG-30MCG ?DOSE PACK
     Dates: start: 20141125
  2. ZOFRAN [Concomitant]
     Active Substance: ONDANSETRON HYDROCHLORIDE
  3. SPRAVATO [Suspect]
     Active Substance: ESKETAMINE
     Indication: DEPRESSION
     Dosage: THERAPY START DATE: 29-JAN TO 04-MAR.  ON AND OFF
  4. SPRAVATO [Suspect]
     Active Substance: ESKETAMINE
  5. WELLBUTRIN [Concomitant]
     Active Substance: BUPROPION HYDROCHLORIDE
     Indication: DEPRESSION
     Dosage: XL?START DATE: 01-FEB
  6. WELLBUTRIN [Concomitant]
     Active Substance: BUPROPION HYDROCHLORIDE
     Dosage: XL
  7. PROZAC [Concomitant]
     Active Substance: FLUOXETINE HYDROCHLORIDE
     Indication: DEPRESSION
     Dosage: STARED 01-JAN
  8. DEPLIN [Concomitant]
     Active Substance: LEVOMEFOLATE CALCIUM
     Indication: DEPRESSION
     Dosage: START DATE: 29-JAN

REACTIONS (7)
  - Panic reaction [Recovered/Resolved]
  - Anxiety [Recovered/Resolved]
  - Unresponsive to stimuli [Recovered/Resolved]
  - Dissociation [Recovered/Resolved]
  - Sedation [Recovered/Resolved]
  - Derealisation [Unknown]
  - Mood altered [Unknown]

NARRATIVE: CASE EVENT DATE: 2020
